FAERS Safety Report 11422801 (Version 1)
Quarter: 2015Q3

REPORT INFORMATION
  Report Type: Spontaneous
  Country: US (occurrence: None)
  Receive Date: 20150826
  Receipt Date: 20150826
  Transmission Date: 20151125
  Serious: Yes (Hospitalization)
  Sender: FDA-Public Use
  Company Number: None

PATIENT
  Age: 62 Year
  Sex: Female
  Weight: 70.76 kg

DRUGS (10)
  1. ALLOPURINOL. [Concomitant]
     Active Substance: ALLOPURINOL
  2. LASIX [Concomitant]
     Active Substance: FUROSEMIDE
  3. PREVACID [Concomitant]
     Active Substance: LANSOPRAZOLE
  4. BUPROPRION [Concomitant]
     Active Substance: BUPROPION
  5. LOVASTATIN. [Concomitant]
     Active Substance: LOVASTATIN
  6. MAGNESIUM [Concomitant]
     Active Substance: MAGNESIUM
  7. DILTIAZEM [Concomitant]
     Active Substance: DILTIAZEM
  8. METFORMIN [Concomitant]
     Active Substance: METFORMIN HYDROCHLORIDE
  9. BIOTIN [Concomitant]
     Active Substance: BIOTIN
  10. BACTRIM [Suspect]
     Active Substance: SULFAMETHOXAZOLE\TRIMETHOPRIM
     Indication: LUNG INFECTION
     Dosage: ONE PILL
     Route: 048
     Dates: start: 20150806, end: 20150806

REACTIONS (1)
  - Meningitis aseptic [None]

NARRATIVE: CASE EVENT DATE: 20150806
